FAERS Safety Report 4406723-2 (Version None)
Quarter: 2004Q2

REPORT INFORMATION
  Report Type: 
  Country: None (occurrence: None)
  Receive Date: 20040618
  Receipt Date: 20040423
  Transmission Date: 20050107
  Serious: No
  Sender: FDA-Public Use
  Company Number: US-JNJFOC-20040405887

PATIENT
  Age: 27 Year
  Sex: Female
  Weight: 58.9676 kg

DRUGS (2)
  1. ORTHO EVRA [Suspect]
     Indication: CONTRACEPTION
     Dates: start: 20040301
  2. MULTIVITAMIN [Concomitant]

REACTIONS (3)
  - BREAST TENDERNESS [None]
  - MENORRHAGIA [None]
  - UTERINE SPASM [None]
